FAERS Safety Report 25520810 (Version 1)
Quarter: 2025Q3

REPORT INFORMATION
  Report Type: Spontaneous
  Country: RU (occurrence: RU)
  Receive Date: 20250705
  Receipt Date: 20250705
  Transmission Date: 20251020
  Serious: Yes (Other)
  Sender: AZURITY PHARMACEUTICALS
  Company Number: RU-AZURITY PHARMACEUTICALS, INC.-AZR202506-001798

PATIENT
  Age: 16 Year
  Sex: Female

DRUGS (1)
  1. METHOTREXATE [Suspect]
     Active Substance: METHOTREXATE
     Indication: Anaplastic large cell lymphoma T- and null-cell types stage III
     Route: 037

REACTIONS (3)
  - Neurotoxicity [Recovering/Resolving]
  - Paraparesis [Not Recovered/Not Resolved]
  - Respiratory failure [Recovering/Resolving]
